FAERS Safety Report 5656732-0 (Version None)
Quarter: 2008Q1

REPORT INFORMATION
  Report Type: 
  Country: None (occurrence: None)
  Receive Date: 20080306
  Receipt Date: 20080306
  Transmission Date: 20080703
  Serious: No
  Sender: FDA-Public Use
  Company Number: None

PATIENT
  Age: 23 Year
  Sex: Male

DRUGS (2)
  1. VENLAFAXINE HCL [Suspect]
     Indication: DEPRESSION
     Dosage: 100MG EVERY DAY PO
     Route: 048
     Dates: start: 20071231, end: 20080122
  2. VENLAFAXINE HCL [Suspect]
     Dosage: 75MG EVERY DAY PO
     Route: 048
     Dates: start: 20071231, end: 20080122

REACTIONS (2)
  - CONVULSION [None]
  - OVERDOSE [None]
